FAERS Safety Report 25669987 (Version 2)
Quarter: 2025Q4

REPORT INFORMATION
  Report Type: Spontaneous
  Country: JP (occurrence: JP)
  Receive Date: 20250812
  Receipt Date: 20251021
  Transmission Date: 20260118
  Serious: Yes (Hospitalization, Other)
  Sender: ASTELLAS
  Company Number: JP-ASTELLAS-2025-AER-016770

PATIENT
  Age: 34 Year
  Sex: Female
  Weight: 78 kg

DRUGS (7)
  1. TACROLIMUS [Suspect]
     Active Substance: TACROLIMUS
     Indication: Liver transplant
     Route: 048
     Dates: start: 20130122, end: 20220804
  2. TACROLIMUS [Suspect]
     Active Substance: TACROLIMUS
     Route: 048
     Dates: start: 20220807
  3. GLYCYRON tablet [Concomitant]
     Indication: Liver transplant
     Route: 048
     Dates: start: 20130122
  4. URSODEOXYCHOLIC tablet 100mg [Concomitant]
     Indication: Liver transplant
     Route: 048
     Dates: start: 20130122
  5. MAGNESIUM OXIDE 250mg [Concomitant]
     Indication: Constipation
     Route: 048
     Dates: start: 20220118, end: 20220906
  6. ACETAMINOPHEN tablet 200mg [Concomitant]
     Indication: Back pain
     Route: 048
     Dates: start: 20220518, end: 20220906
  7. AMPICILLIN SODIUM\SULBACTAM SODIUM [Concomitant]
     Active Substance: AMPICILLIN SODIUM\SULBACTAM SODIUM
     Indication: Amniotic cavity infection
     Route: 042
     Dates: start: 20220804, end: 20250808

REACTIONS (4)
  - Amniotic cavity infection [Recovered/Resolved]
  - Calculus urinary [Recovered/Resolved]
  - Maternal exposure during pregnancy [Unknown]
  - Maternal exposure during breast feeding [Unknown]

NARRATIVE: CASE EVENT DATE: 20211207
